FAERS Safety Report 4813598-6 (Version None)
Quarter: 2005Q4

REPORT INFORMATION
  Report Type: 
  Country: None (occurrence: None)
  Receive Date: 20051028
  Receipt Date: 20050302
  Transmission Date: 20060501
  Serious: Yes (Other)
  Sender: FDA-Public Use
  Company Number: US-GLAXOSMITHKLINE-A0547950A

PATIENT
  Age: 93 Year
  Sex: Female

DRUGS (5)
  1. ADVAIR DISKUS 100/50 [Suspect]
     Indication: ASTHMA
     Route: 055
     Dates: start: 20040301
  2. ALBUTEROL [Concomitant]
  3. FOSAMAX [Concomitant]
  4. METOPROLOL [Concomitant]
  5. ASPIRIN [Concomitant]

REACTIONS (4)
  - ASTHMA [None]
  - PHARMACEUTICAL PRODUCT COMPLAINT [None]
  - PRODUCTIVE COUGH [None]
  - WHEEZING [None]
